FAERS Safety Report 20787295 (Version 1)
Quarter: 2022Q2

REPORT INFORMATION
  Report Type: Spontaneous
  Country: CN (occurrence: CN)
  Receive Date: 20220505
  Receipt Date: 20220505
  Transmission Date: 20220720
  Serious: Yes (Other)
  Sender: FDA-Public Use
  Company Number: CN-ORGANON-O2205CHN000249

PATIENT
  Age: 30 Year
  Sex: Female
  Weight: 44 kg

DRUGS (1)
  1. DIPROSPAN [Suspect]
     Active Substance: BETAMETHASONE DIPROPIONATE\BETAMETHASONE SODIUM PHOSPHATE
     Indication: Scar
     Dosage: 0.4 MILLILITER, QD
     Dates: start: 20220407, end: 20220407

REACTIONS (4)
  - Breast atrophy [Not Recovered/Not Resolved]
  - Mastoptosis [Not Recovered/Not Resolved]
  - Skin discolouration [Not Recovered/Not Resolved]
  - Alopecia [Not Recovered/Not Resolved]

NARRATIVE: CASE EVENT DATE: 20220416
